FAERS Safety Report 4784963-0 (Version None)
Quarter: 2005Q3

REPORT INFORMATION
  Report Type: 
  Country: None (occurrence: None)
  Receive Date: 20050928
  Receipt Date: 20050914
  Transmission Date: 20060218
  Serious: Yes (Other)
  Sender: FDA-Public Use
  Company Number: US_0504115377

PATIENT
  Age: 1 Day
  Sex: Female
  Weight: 2 kg

DRUGS (3)
  1. SARAFEM [Suspect]
     Dosage: UNK
     Dates: start: 20040101, end: 20050216
  2. PRENATAL VITAMINS [Concomitant]
  3. ZOFRAN [Concomitant]

REACTIONS (3)
  - CAESAREAN SECTION [None]
  - DRUG EXPOSURE DURING PREGNANCY [None]
  - FOETAL HEART RATE DECELERATION [None]
